FAERS Safety Report 18771029 (Version 1)
Quarter: 2021Q1

REPORT INFORMATION
  Report Type: Spontaneous
  Country: HU (occurrence: HU)
  Receive Date: 20210122
  Receipt Date: 20210122
  Transmission Date: 20210419
  Serious: Yes (Other)
  Sender: FDA-Public Use
  Company Number: HU-CELLTRION INC.-2021HU000488

PATIENT

DRUGS (12)
  1. VENETOCLAX. [Suspect]
     Active Substance: VENETOCLAX
     Dosage: TITRATED TO 400 MG DAILY
  2. CHOP [Suspect]
     Active Substance: CYCLOPHOSPHAMIDE\DOXORUBICIN\PREDNISONE\VINCRISTINE
     Indication: DIFFUSE LARGE B-CELL LYMPHOMA
     Dosage: UNK, (AS RCHOP21) FOR 6 CYCLES
  3. VENETOCLAX. [Suspect]
     Active Substance: VENETOCLAX
     Dosage: UNK, MAINTENANCE THERAPY
  4. RITUXIMAB (UNKNOWN) [Suspect]
     Active Substance: RITUXIMAB
     Dosage: UNK, AS R?BEAM
  5. BENDAMUSTINE [Suspect]
     Active Substance: BENDAMUSTINE
     Indication: DIFFUSE LARGE B-CELL LYMPHOMA
     Dosage: 70 MG/M2 ON DAYS 1 AND 2 OF EACH CYCLE, FOR 6 CYCLES EVERY 28 DAYS (RITUXIMAB?BENDAMUSTINE?VENETOCLA
  6. VENETOCLAX. [Suspect]
     Active Substance: VENETOCLAX
     Dosage: 2ND?6TH CYCLE (6 CYCLES EVERY 28 DAYS, RITUXIMAB?BENDAMUSTINE?VENETOCLAX INDUCTION THERAPY)
  7. VENETOCLAX. [Suspect]
     Active Substance: VENETOCLAX
     Indication: DIFFUSE LARGE B-CELL LYMPHOMA
     Dosage: 50 MG TO 400 MG IN THE FIRST CYCLE (6 CYCLES EVERY 28 DAYS, RITUXIMAB?BENDAMUSTINE?VENETOCLAX INDUCT
  8. RITUXIMAB (UNKNOWN) [Suspect]
     Active Substance: RITUXIMAB
     Dosage: UNK, AS R?DHAP
  9. RITUXIMAB (UNKNOWN) [Suspect]
     Active Substance: RITUXIMAB
     Dosage: 375 MG/M2 FOR A TOTAL OF 6 CYCLES EVERY 28 DAYS (RITUXIMAB?BENDAMUSTINE?VENETOCLAX INDUCTION THERAPY
  10. DHAP [Suspect]
     Active Substance: CISPLATIN\CYTARABINE\DEXAMETHASONE
     Indication: DIFFUSE LARGE B-CELL LYMPHOMA
     Dosage: UNK, (AS R?DHAP)
  11. RITUXIMAB (UNKNOWN) [Suspect]
     Active Substance: RITUXIMAB
     Indication: DIFFUSE LARGE B-CELL LYMPHOMA
     Dosage: UNK, AS RCHOP21 FOR 6 CYCLES
  12. BEAM [Suspect]
     Active Substance: SODIUM FLUORIDE
     Indication: PRODUCT USED FOR UNKNOWN INDICATION
     Dosage: UNK, (AS R?BEAM)

REACTIONS (13)
  - Pneumonia [Unknown]
  - Candida infection [Recovering/Resolving]
  - General physical health deterioration [Recovering/Resolving]
  - Myelosuppression [Unknown]
  - Diffuse large B-cell lymphoma recurrent [Recovered/Resolved]
  - Drug resistance [Unknown]
  - Pneumonia [Recovering/Resolving]
  - Febrile neutropenia [Unknown]
  - Infection [Unknown]
  - Autologous haematopoietic stem cell transplant [Unknown]
  - Respiratory failure [Recovering/Resolving]
  - Neutropenia [Unknown]
  - Febrile neutropenia [Recovering/Resolving]

NARRATIVE: CASE EVENT DATE: 201701
